FAERS Safety Report 16441604 (Version 1)
Quarter: 2019Q2

REPORT INFORMATION
  Report Type: Spontaneous
  Country: MX (occurrence: MX)
  Receive Date: 20190617
  Receipt Date: 20190617
  Transmission Date: 20190711
  Serious: Yes (Hospitalization, Disabling)
  Sender: FDA-Public Use
  Company Number: MX-ANIPHARMA-2019-MX-000021

PATIENT
  Age: 94 Year
  Sex: Female
  Weight: 50 kg

DRUGS (11)
  1. CARBIDOPA+LEVODOPA [Concomitant]
     Active Substance: CARBIDOPA\LEVODOPA
     Dosage: 250/25 MG
     Route: 048
     Dates: start: 20180425
  2. ATROVENT [Concomitant]
     Active Substance: IPRATROPIUM BROMIDE
     Dosage: UNK
     Route: 055
  3. ERDOSTEINE [Concomitant]
     Active Substance: ERDOSTEINE
     Dosage: UNK
     Route: 055
  4. FOSFOMYCIN [Concomitant]
     Active Substance: FOSFOMYCIN
     Dosage: 500 MG TID
     Route: 048
     Dates: start: 20190516, end: 20190522
  5. ATACAND [Suspect]
     Active Substance: CANDESARTAN CILEXETIL
     Indication: HYPERTENSION
     Dosage: 16 MG DAILY
     Route: 048
     Dates: start: 201712
  6. MOTILIUM [Concomitant]
     Active Substance: DOMPERIDONE
     Dosage: 10 MG TID
     Route: 048
     Dates: start: 20190521
  7. PULMICORT TURBUHALER [Suspect]
     Active Substance: BUDESONIDE
     Dosage: 3 NEBULIZATION PER DAY WITH 3 OR 4 UNITS PER NEBULIZATION / 1 NEBULIZATION PER DAY OF 3 OR 4 UNITS
     Route: 055
     Dates: end: 201905
  8. IVEL [Concomitant]
     Dosage: 250 MG DAILY
     Route: 048
     Dates: start: 201712
  9. NITROFURANTOIN. [Concomitant]
     Active Substance: NITROFURANTOIN
     Dosage: 100 MG TID
     Route: 048
     Dates: start: 20190521, end: 20190529
  10. METFORMIN [Concomitant]
     Active Substance: METFORMIN HYDROCHLORIDE
     Dosage: 850 MG DAILY
     Route: 048
     Dates: start: 201902, end: 201902
  11. CEFTRIAXONE. [Concomitant]
     Active Substance: CEFTRIAXONE
     Dosage: 1 G DAILY
     Route: 030
     Dates: start: 20180420, end: 20180425

REACTIONS (18)
  - Insomnia [Recovered/Resolved with Sequelae]
  - Urinary tract infection [Recovered/Resolved with Sequelae]
  - Humerus fracture [Recovered/Resolved with Sequelae]
  - Vomiting [Recovered/Resolved with Sequelae]
  - Muscle atrophy [Not Recovered/Not Resolved]
  - Dry mouth [Recovered/Resolved]
  - Cyanosis [Recovered/Resolved with Sequelae]
  - Productive cough [Recovered/Resolved with Sequelae]
  - Diarrhoea [Not Recovered/Not Resolved]
  - Parkinson^s disease [Recovered/Resolved with Sequelae]
  - Dysphagia [Recovered/Resolved]
  - Hyperhidrosis [Recovered/Resolved with Sequelae]
  - Respiratory rate increased [Recovered/Resolved with Sequelae]
  - Kidney infection [Recovered/Resolved with Sequelae]
  - Blood glucose increased [Recovered/Resolved]
  - Fall [Recovered/Resolved with Sequelae]
  - Gait inability [Recovered/Resolved with Sequelae]
  - Tongue discolouration [Recovered/Resolved with Sequelae]

NARRATIVE: CASE EVENT DATE: 201712
